FAERS Safety Report 5323696-9 (Version None)
Quarter: 2007Q2

REPORT INFORMATION
  Report Type: 
  Country: None (occurrence: None)
  Receive Date: 20070222
  Receipt Date: 20070122
  Transmission Date: 20071010
  Serious: Yes (Other)
  Sender: FDA-Public Use
  Company Number: 2006152452

PATIENT
  Age: 83 Year
  Sex: Male
  Weight: 81.6 kg

DRUGS (8)
  1. EXUBERA [Suspect]
     Indication: BLOOD GLUCOSE
     Dosage: 8 MG (4 MG, 2 IN 1 D)
     Dates: start: 20061201, end: 20061201
  2. EXUBERA [Suspect]
  3. INSULINS AND ANALOGUES (INSULINS AND ANALOGUES) [Concomitant]
  4. DIGOXIN [Concomitant]
  5. WARFARIN SODIUM [Concomitant]
  6. COREG [Concomitant]
  7. DRUG, UNSPECIFIED (DRUG, UNSPECIFIED) [Concomitant]
  8. INSULIN (INSULIN) [Concomitant]

REACTIONS (1)
  - BLOOD GLUCOSE INCREASED [None]
